FAERS Safety Report 7529380-5 (Version None)
Quarter: 2011Q2

REPORT INFORMATION
  Report Type: 
  Country: None (occurrence: None)
  Receive Date: 20110607
  Receipt Date: 20110530
  Transmission Date: 20111010
  Serious: Yes (Life-Threatening)
  Sender: FDA-Public Use
  Company Number: JP-JNJFOC-20110601161

PATIENT
  Age: 91 Year
  Sex: Male

DRUGS (6)
  1. YOKUKAN-SAN [Concomitant]
     Route: 048
  2. SELBEX [Concomitant]
     Route: 048
  3. KAMAG G [Concomitant]
     Route: 048
  4. GALANTAMINE HYDROBROMIDE [Suspect]
     Indication: DEMENTIA ALZHEIMER'S TYPE
     Route: 048
     Dates: start: 20110419
  5. GALANTAMINE HYDROBROMIDE [Suspect]
     Route: 048
     Dates: start: 20110517, end: 20110530
  6. ALL OTHER THERAPEUTIC PRODUCTS [Concomitant]
     Route: 048

REACTIONS (2)
  - INTERSTITIAL LUNG DISEASE [None]
  - PLATELET COUNT DECREASED [None]
